FAERS Safety Report 5590057-7 (Version None)
Quarter: 2008Q1

REPORT INFORMATION
  Report Type: 
  Country: None (occurrence: None)
  Receive Date: 20080114
  Receipt Date: 20080103
  Transmission Date: 20080703
  Serious: Yes (Other)
  Sender: FDA-Public Use
  Company Number: US-ELI_LILLY_AND_COMPANY-US200801000750

PATIENT
  Sex: Female

DRUGS (2)
  1. CYMBALTA [Suspect]
     Dosage: 60 MG, UNK
     Dates: start: 20070719, end: 20071220
  2. XANAX [Concomitant]
     Dosage: UNK, AS NEEDED

REACTIONS (2)
  - EPSTEIN-BARR VIRUS INFECTION [None]
  - HEPATITIS VIRAL [None]
